FAERS Safety Report 9738954 (Version 1)
Quarter: 2013Q4

REPORT INFORMATION
  Report Type: Spontaneous
  Country: BR (occurrence: BR)
  Receive Date: 20131209
  Receipt Date: 20131209
  Transmission Date: 20140711
  Serious: Yes (Other)
  Sender: FDA-Public Use
  Company Number: PHHY2013BR142745

PATIENT
  Sex: Female

DRUGS (1)
  1. ACLASTA [Suspect]
     Dosage: UNK UKN, UNK
     Route: 042

REACTIONS (4)
  - Neuralgic amyotrophy [Unknown]
  - Neck pain [Unknown]
  - Musculoskeletal pain [Unknown]
  - Neuropathy peripheral [Unknown]
